FAERS Safety Report 13010318 (Version 1)
Quarter: 2016Q4

REPORT INFORMATION
  Report Type: Spontaneous
  Country: US (occurrence: US)
  Receive Date: 20161207
  Receipt Date: 20161207
  Transmission Date: 20170207
  Serious: Yes (Disabling)
  Sender: FDA-Public Use
  Company Number: None

PATIENT
  Age: 32 Year
  Sex: Male
  Weight: 58.5 kg

DRUGS (4)
  1. ZOLPIDEM TARTRATE. [Concomitant]
     Active Substance: ZOLPIDEM TARTRATE
  2. ZYRTEC [Concomitant]
     Active Substance: CETIRIZINE HYDROCHLORIDE
  3. CIPROFLOXACIN HCL [Suspect]
     Active Substance: CIPROFLOXACIN HYDROCHLORIDE
     Indication: EPIDIDYMITIS
     Dosage: ?          QUANTITY:2 TABLET(S);?
     Route: 048
     Dates: start: 20160603, end: 20160604
  4. FLORASTOR [Concomitant]
     Active Substance: SACCHAROMYCES CEREVISIAE

REACTIONS (21)
  - Feeling abnormal [None]
  - Mobility decreased [None]
  - Heart rate irregular [None]
  - Vitreous floaters [None]
  - Headache [None]
  - Insomnia [None]
  - Muscle twitching [None]
  - Arthropathy [None]
  - Influenza like illness [None]
  - Dry mouth [None]
  - Decreased appetite [None]
  - Dry eye [None]
  - Depressed level of consciousness [None]
  - Abnormal loss of weight [None]
  - Neuropathy peripheral [None]
  - Diarrhoea [None]
  - Anxiety [None]
  - Muscular weakness [None]
  - Vision blurred [None]
  - Arthralgia [None]
  - Palpitations [None]

NARRATIVE: CASE EVENT DATE: 20160603
